FAERS Safety Report 24754036 (Version 2)
Quarter: 2025Q4

REPORT INFORMATION
  Report Type: Spontaneous
  Country: US (occurrence: US)
  Receive Date: 20241219
  Receipt Date: 20251229
  Transmission Date: 20260117
  Serious: No
  Sender: GALPHARM INTERNATIONAL
  Company Number: US-PERRIGO-24US006888

PATIENT
  Sex: Female
  Weight: 72.562 kg

DRUGS (2)
  1. TIOCONAZOLE [Suspect]
     Active Substance: TIOCONAZOLE
     Indication: Vulvovaginal mycotic infection
     Dosage: UNK, SINGLE
     Route: 067
     Dates: start: 20240601, end: 20240601
  2. TIOCONAZOLE [Suspect]
     Active Substance: TIOCONAZOLE
     Dosage: UNKNOWN, SINGLE
     Route: 061
     Dates: start: 20240601, end: 20240601

REACTIONS (9)
  - Genital paraesthesia [Recovered/Resolved]
  - Dermatitis contact [Unknown]
  - Vulvovaginal pain [Unknown]
  - Vulvovaginal burning sensation [Recovered/Resolved]
  - Vulvovaginal rash [Recovered/Resolved]
  - Vulvovaginal swelling [Unknown]
  - Incorrect route of product administration [Unknown]
  - Expired product administered [Unknown]
  - Maternal exposure during breast feeding [Unknown]

NARRATIVE: CASE EVENT DATE: 20240601
